FAERS Safety Report 20088900 (Version 1)
Quarter: 2021Q4

REPORT INFORMATION
  Report Type: Spontaneous
  Country: BR (occurrence: BR)
  Receive Date: 20211119
  Receipt Date: 20211119
  Transmission Date: 20220303
  Serious: Yes (Hospitalization)
  Sender: FDA-Public Use
  Company Number: None

PATIENT
  Sex: Male
  Weight: 85 kg

DRUGS (1)
  1. JANUMET [Suspect]
     Active Substance: METFORMIN HYDROCHLORIDE\SITAGLIPTIN PHOSPHATE
     Dosage: 2 TABLETS-50/500 MG AFTER DINNER, DAILY
     Route: 048
     Dates: start: 2014

REACTIONS (2)
  - COVID-19 [Recovered/Resolved]
  - Multiple drug therapy [Unknown]

NARRATIVE: CASE EVENT DATE: 20140101
